FAERS Safety Report 13018052 (Version 1)
Quarter: 2016Q4

REPORT INFORMATION
  Report Type: Spontaneous
  Country: US (occurrence: US)
  Receive Date: 20161212
  Receipt Date: 20161212
  Transmission Date: 20170207
  Serious: Yes (Hospitalization)
  Sender: FDA-Public Use
  Company Number: US-PFIZER INC-2016570110

PATIENT
  Age: 12 Month
  Sex: Male
  Weight: 12.7 kg

DRUGS (3)
  1. CEFAZOLIN [Concomitant]
     Active Substance: CEFAZOLIN
     Indication: PROPHYLAXIS
  2. ROCURONIUM BROMIDE. [Suspect]
     Active Substance: ROCURONIUM BROMIDE
     Dosage: 80 MG, UNK
     Route: 008
  3. SEVOFLURANE. [Concomitant]
     Active Substance: SEVOFLURANE
     Dosage: UNK

REACTIONS (4)
  - Wrong drug administered [Unknown]
  - Heart rate increased [Recovered/Resolved]
  - Paralysis [Recovered/Resolved]
  - Restlessness [Recovered/Resolved]
